FAERS Safety Report 18927747 (Version 9)
Quarter: 2024Q2

REPORT INFORMATION
  Report Type: Spontaneous
  Country: ES (occurrence: ES)
  Receive Date: 20210223
  Receipt Date: 20240424
  Transmission Date: 20240716
  Serious: Yes (Other)
  Sender: FDA-Public Use
  Company Number: NVSC2021ES040761

PATIENT
  Age: 25 Year
  Sex: Male

DRUGS (33)
  1. MYCOPHENOLATE MOFETIL [Suspect]
     Active Substance: MYCOPHENOLATE MOFETIL
     Indication: Immunosuppressant drug therapy
     Dosage: 1000 MG, Q12H
     Route: 065
  2. MYCOPHENOLATE MOFETIL [Suspect]
     Active Substance: MYCOPHENOLATE MOFETIL
     Indication: Heart transplant
     Route: 065
  3. MYCOPHENOLATE MOFETIL [Suspect]
     Active Substance: MYCOPHENOLATE MOFETIL
     Indication: Prophylaxis against transplant rejection
     Route: 065
  4. BASILIXIMAB [Suspect]
     Active Substance: BASILIXIMAB
     Indication: Immunosuppressant drug therapy
     Dosage: 20 MG (BEFORE THE SURGERY AND AT DAY +4)
     Route: 065
  5. BASILIXIMAB [Suspect]
     Active Substance: BASILIXIMAB
     Indication: Heart transplant
     Dosage: 20 MG BEFORE THE SURGERY AND AT DAY +4
     Route: 065
  6. BASILIXIMAB [Suspect]
     Active Substance: BASILIXIMAB
     Indication: Prophylaxis against transplant rejection
     Dosage: 20 MG (20 MG BEFORE THE SURGERY AND AT DAY +4 )
     Route: 065
  7. METHYLPREDNISOLONE [Suspect]
     Active Substance: METHYLPREDNISOLONE
     Indication: Immunosuppressant drug therapy
     Dosage: 125 MG, Q8H (WITH TAPERING FROM 60 MG/DAY TO 10 MG/DAY)
     Route: 065
  8. METHYLPREDNISOLONE [Suspect]
     Active Substance: METHYLPREDNISOLONE
     Indication: Heart transplant
     Dosage: 125 MG/ EVERY 8 HOURS WITH TAPERING FROM 60 MG/DAY TO 10 MG/DAY
     Route: 065
  9. METHYLPREDNISOLONE [Suspect]
     Active Substance: METHYLPREDNISOLONE
     Indication: Prophylaxis against transplant rejection
     Dosage: 125 MG/ EVERY 8 HOURS WITH TAPERING FROM 60 MG/DAY TO 10 MG/DAY
     Route: 065
  10. GANCICLOVIR SODIUM [Suspect]
     Active Substance: GANCICLOVIR SODIUM
     Indication: Antibiotic prophylaxis
     Dosage: UNK
     Route: 065
  11. GANCICLOVIR SODIUM [Suspect]
     Active Substance: GANCICLOVIR SODIUM
     Indication: Antiviral prophylaxis
  12. COTRIMOXAZOLE [Suspect]
     Active Substance: SULFAMETHOXAZOLE\TRIMETHOPRIM
     Indication: Antibiotic prophylaxis
     Dosage: UNK
     Route: 065
  13. PREDNISONE [Concomitant]
     Active Substance: PREDNISONE
     Indication: Prophylaxis against transplant rejection
     Dosage: 15 MG, Q12H
     Route: 065
  14. CEFAZOLIN SODIUM [Concomitant]
     Active Substance: CEFAZOLIN SODIUM
     Indication: Antibiotic prophylaxis
     Dosage: 2 G, Q8H
     Route: 065
  15. CEFAZOLIN SODIUM [Concomitant]
     Active Substance: CEFAZOLIN SODIUM
     Dosage: 2 MG, Q8H
     Route: 065
  16. ANIDULAFUNGIN [Concomitant]
     Active Substance: ANIDULAFUNGIN
     Indication: Antifungal prophylaxis
     Dosage: ON THE FIRST DAY
     Route: 065
  17. ANIDULAFUNGIN [Concomitant]
     Active Substance: ANIDULAFUNGIN
     Dosage: 100 MG, QD (DAILY)
     Route: 065
  18. MEROPENEM [Concomitant]
     Active Substance: MEROPENEM
     Indication: Pneumonia
     Dosage: 500 MG, QD
     Route: 065
  19. VANCOMYCIN HYDROCHLORIDE [Concomitant]
     Active Substance: VANCOMYCIN HYDROCHLORIDE
     Indication: Pneumonia
     Dosage: 1G/24 HOURS
     Route: 065
  20. AMIKACIN SULFATE [Concomitant]
     Active Substance: AMIKACIN SULFATE
     Indication: Pseudomonas aeruginosa meningitis
     Dosage: UNK
     Route: 065
  21. AMIKACIN SULFATE [Concomitant]
     Active Substance: AMIKACIN SULFATE
     Indication: Pneumonia
  22. CEFTAZIDIME [Concomitant]
     Active Substance: CEFTAZIDIME
     Indication: Pseudomonas infection
     Dosage: 1 G, Q8H
     Route: 065
  23. CEFTAZIDIME [Concomitant]
     Active Substance: CEFTAZIDIME
     Indication: Pneumonia
  24. VORICONAZOLE [Concomitant]
     Active Substance: VORICONAZOLE
     Indication: Scedosporium infection
     Dosage: 400 MG, Q12H (FIRST DAY)
     Route: 065
  25. VORICONAZOLE [Concomitant]
     Active Substance: VORICONAZOLE
     Dosage: 300 MG, Q12H
     Route: 065
  26. TERBINAFINE HYDROCHLORIDE [Concomitant]
     Active Substance: TERBINAFINE HYDROCHLORIDE
     Indication: Scedosporium infection
     Dosage: UNK
     Route: 065
  27. AMBISOME [Concomitant]
     Active Substance: AMPHOTERICIN B
     Indication: Fungal infection
     Dosage: 270 MG, QD, LIPOSOMAL AMPHOTERICIN B WAS STARTED (270 MG EVERY 24 HOURS)
     Route: 065
  28. AMBISOME [Concomitant]
     Active Substance: AMPHOTERICIN B
     Indication: Fungaemia
  29. TACROLIMUS [Concomitant]
     Active Substance: TACROLIMUS
     Indication: Heart transplant
     Dosage: UNK
     Route: 065
  30. TACROLIMUS [Concomitant]
     Active Substance: TACROLIMUS
     Indication: Immunosuppressant drug therapy
  31. TACROLIMUS [Concomitant]
     Active Substance: TACROLIMUS
     Indication: Product used for unknown indication
  32. AMIODARONE [Concomitant]
     Active Substance: AMIODARONE
     Indication: Syncope
     Dosage: UNK
     Route: 065
  33. ACENOCOUMAROL [Concomitant]
     Active Substance: ACENOCOUMAROL
     Indication: Syncope
     Dosage: UNK
     Route: 065

REACTIONS (2)
  - Pancytopenia [Unknown]
  - Product use in unapproved indication [Unknown]
